FAERS Safety Report 10012057 (Version 1)
Quarter: 2014Q1

REPORT INFORMATION
  Report Type: Spontaneous
  Country: US (occurrence: None)
  Receive Date: 20140304
  Receipt Date: 20140304
  Transmission Date: 20141002
  Serious: Yes (Hospitalization)
  Sender: FDA-Public Use
  Company Number: RB-57022-2013

PATIENT
  Age: 12 Month
  Sex: 0

DRUGS (1)
  1. SUBOXONE [Suspect]
     Indication: ACCIDENTAL EXPOSURE TO PRODUCT BY CHILD
     Dosage: INGESTED ONE TABLET
     Route: 048

REACTIONS (1)
  - Accidental exposure to product by child [None]
